FAERS Safety Report 10137981 (Version 1)
Quarter: 2014Q2

REPORT INFORMATION
  Report Type: Report from Study
  Country: US (occurrence: US)
  Receive Date: 20140429
  Receipt Date: 20140429
  Transmission Date: 20141212
  Serious: Yes (Other)
  Sender: FDA-Public Use
  Company Number: US-ROCHE-1390689

PATIENT
  Age: 3 Year
  Sex: Male

DRUGS (4)
  1. ACTEMRA [Suspect]
     Indication: JUVENILE IDIOPATHIC ARTHRITIS
     Route: 042
     Dates: start: 20140417
  2. ANAKINRA [Concomitant]
     Route: 058
  3. BENADRYL (UNITED STATES) [Concomitant]
  4. TYLENOL [Concomitant]

REACTIONS (4)
  - Retching [Recovered/Resolved]
  - Erythema [Recovered/Resolved]
  - First use syndrome [Recovered/Resolved]
  - Oral pain [Unknown]
